FAERS Safety Report 8523062-9 (Version None)
Quarter: 2012Q3

REPORT INFORMATION
  Report Type: 
  Country: None (occurrence: None)
  Receive Date: 20120720
  Receipt Date: 20120711
  Transmission Date: 20120928
  Serious: Yes (Other)
  Sender: FDA-Public Use
  Company Number: CA-ROCHE-1088046

PATIENT
  Sex: Female
  Weight: 108.05 kg

DRUGS (4)
  1. ACTEMRA [Suspect]
     Indication: RHEUMATOID ARTHRITIS
     Route: 042
     Dates: start: 20120405
  2. METHOTREXATE [Concomitant]
  3. B12 COMPLEX [Concomitant]
  4. FOLIC ACID [Concomitant]

REACTIONS (2)
  - INTERNATIONAL NORMALISED RATIO INCREASED [None]
  - ABNORMAL CLOTTING FACTOR [None]
